FAERS Safety Report 5370128-0 (Version None)
Quarter: 2007Q2

REPORT INFORMATION
  Report Type: 
  Country: None (occurrence: None)
  Receive Date: 20070626
  Receipt Date: 20070613
  Transmission Date: 20071010
  Serious: Yes (Other)
  Sender: FDA-Public Use
  Company Number: CA-ELI_LILLY_AND_COMPANY-CA200706003489

PATIENT
  Age: 53 Year
  Sex: Male

DRUGS (13)
  1. HUMULIN N [Suspect]
     Indication: DIABETES MELLITUS
     Dosage: UNK, DAILY (1/D)
     Route: 058
  2. HUMALOG [Suspect]
  3. ADVAIR DISKUS 100/50 [Concomitant]
     Indication: ASTHMA
     Dates: start: 20050101
  4. INDOMETHACIN [Concomitant]
     Indication: GOUT
     Dosage: 50 MG, AS NEEDED
     Route: 048
     Dates: start: 20060101
  5. APO-FUROSEMIDE [Concomitant]
     Dosage: 40 MG, 3/D
     Route: 048
  6. APO-SALVENT [Concomitant]
     Indication: ASTHMA
     Dosage: UNK, AS NEEDED
     Dates: start: 20050101
  7. ASPIRIN [Concomitant]
     Dosage: 81 MG, UNK
     Route: 048
     Dates: start: 20030101
  8. LIPITOR [Concomitant]
     Indication: BLOOD CHOLESTEROL
     Dosage: 10 MG, DAILY (1/D)
     Route: 048
     Dates: start: 20070101
  9. METFORMIN HCL [Concomitant]
     Indication: DIABETES MELLITUS
     Route: 048
     Dates: start: 20020101
  10. MELOXICAM [Concomitant]
     Indication: ARTHRITIS
     Dosage: 7.5 MG, AS NEEDED
     Route: 048
     Dates: start: 20060101
  11. RAMIPRIL [Concomitant]
     Indication: BLOOD PRESSURE
     Dosage: 5 MG, DAILY (1/D)
     Route: 048
  12. TYLENOL W/ CODEINE NO. 3 [Concomitant]
     Indication: BACK PAIN
     Dosage: 8 TABLETS DAILY
     Route: 048
  13. ZAROXOLYN [Concomitant]
     Route: 048
     Dates: start: 20040101

REACTIONS (3)
  - BLOOD GLUCOSE INCREASED [None]
  - MALAISE [None]
  - WEIGHT INCREASED [None]
